FAERS Safety Report 21853314 (Version 2)
Quarter: 2025Q1

REPORT INFORMATION
  Report Type: Spontaneous
  Country: US (occurrence: US)
  Receive Date: 20230112
  Receipt Date: 20250111
  Transmission Date: 20250409
  Serious: No
  Sender: AMNEAL
  Company Number: US-AMNEAL PHARMACEUTICALS-2022-AMRX-03987

PATIENT
  Sex: Female

DRUGS (1)
  1. DICLOFENAC SODIUM AND MISOPROSTOL [Suspect]
     Active Substance: DICLOFENAC SODIUM\MISOPROSTOL
     Indication: Headache
     Route: 065

REACTIONS (2)
  - Drug ineffective [Unknown]
  - Product physical issue [None]
